FAERS Safety Report 5826362-6 (Version None)
Quarter: 2008Q3

REPORT INFORMATION
  Report Type: 
  Country: None (occurrence: None)
  Receive Date: 20080729
  Receipt Date: 20080710
  Transmission Date: 20090109
  Serious: No
  Sender: FDA-Public Use
  Company Number: US-BOEHRINGER INGELHEIM GMBH, GERMANY-2008-BP-09767BP

PATIENT
  Sex: Female

DRUGS (6)
  1. SPIRIVA [Suspect]
     Route: 048
     Dates: start: 20080401
  2. CARISOPRODOL [Concomitant]
  3. TEKURNA [Concomitant]
  4. DIOVAN [Concomitant]
     Indication: HYPERTENSION
  5. OMEPRAZOLE [Concomitant]
  6. DOXAZOSIN MESYLATE [Concomitant]

REACTIONS (1)
  - DYSPNOEA [None]
